FAERS Safety Report 10744592 (Version 1)
Quarter: 2015Q1

REPORT INFORMATION
  Report Type: Spontaneous
  Country: US (occurrence: None)
  Receive Date: 20150126
  Receipt Date: 20150126
  Transmission Date: 20150721
  Serious: Yes (Other)
  Sender: FDA-Public Use
  Company Number: None

PATIENT
  Age: 59 Year
  Sex: Female
  Weight: 76.66 kg

DRUGS (1)
  1. LABETALOL [Suspect]
     Active Substance: LABETALOL\LABETALOL HYDROCHLORIDE
     Indication: HYPERTENSION
     Dosage: 1  TWICE DAILY TAKEN BY MOUTH
     Route: 048
     Dates: start: 20150117

REACTIONS (8)
  - Musculoskeletal disorder [None]
  - Peripheral swelling [None]
  - Dyspnoea [None]
  - Dizziness [None]
  - Sensory loss [None]
  - Abasia [None]
  - Fall [None]
  - Fatigue [None]

NARRATIVE: CASE EVENT DATE: 20150117
